FAERS Safety Report 7534578-6 (Version None)
Quarter: 2011Q2

REPORT INFORMATION
  Report Type: 
  Country: None (occurrence: None)
  Receive Date: 20110609
  Receipt Date: 20090625
  Transmission Date: 20111010
  Serious: Yes (Death, Hospitalization, Other)
  Sender: FDA-Public Use
  Company Number: PHMT2006CA01612

PATIENT
  Sex: Male

DRUGS (29)
  1. VALPROATE SODIUM [Concomitant]
     Dosage: 250 MG, UNK
  2. FLOMAX [Concomitant]
     Dosage: 4 MG, QD
  3. DOCUSATE [Concomitant]
  4. COLACE [Concomitant]
  5. SPIRIVA [Concomitant]
  6. PANTOPRAZOLE SODIUM [Concomitant]
     Dosage: 40 OT, BID
  7. MORPHINE [Concomitant]
     Dosage: UNK, PRN
  8. VALIUM [Concomitant]
     Dosage: UNK, PRN
  9. CLOZAPINE [Suspect]
     Indication: SCHIZOPHRENIA
     Dosage: 300 MG, PER DAY
     Route: 048
     Dates: start: 20050615, end: 20080711
  10. CLONAZEPAM [Concomitant]
     Dosage: 1 MG, QHS
  11. VENTOLIN HFA [Concomitant]
     Dosage: UNK
  12. PREDNISONE [Concomitant]
     Dosage: 15 MG, UNK
  13. ATROVENT [Concomitant]
  14. CLOZAPINE [Suspect]
     Dosage: 25 MG, BID
     Route: 048
     Dates: start: 20081017, end: 20090617
  15. ZITHROMAX [Suspect]
  16. FLOVENT [Concomitant]
  17. SEREVENT [Concomitant]
  18. MILK OF MAGNESIA TAB [Concomitant]
  19. ROBINUL [Concomitant]
     Dosage: UNK, PRN
  20. CLOZAPINE [Suspect]
     Dosage: 50 MG, BID
  21. ATASOL [Concomitant]
     Dosage: 650 MG, QID
  22. LASIX [Concomitant]
     Dosage: 100 MG, BID
  23. HYDROCHLOROTHIAZIDE [Concomitant]
     Dosage: 12.5 MG, QOD
  24. K-DUR [Concomitant]
     Dosage: 20 MEQ, QD
  25. DITROPAN [Concomitant]
     Dosage: 5 MG, BID
  26. PREDNISONE [Concomitant]
     Dosage: 10 MG, UNK
  27. CLOZAPINE [Suspect]
     Indication: PSYCHOTIC DISORDER
     Dosage: 100 MG, BID
     Route: 048
  28. VALPROATE SODIUM [Concomitant]
     Dosage: 825 MG, PER DAY
  29. LOXAPINE HCL [Concomitant]
     Dosage: UNK, PRN

REACTIONS (16)
  - BRACHIAL PLEXUS INJURY [None]
  - PNEUMONIA [None]
  - PSYCHIATRIC DECOMPENSATION [None]
  - HYPERTHERMIA [None]
  - LEUKOPENIA [None]
  - CARDIAC FAILURE [None]
  - MENTAL DISORDER [None]
  - LYMPHOMA [None]
  - NEUTROPHIL COUNT DECREASED [None]
  - LUNG NEOPLASM [None]
  - SUPERINFECTION [None]
  - NEUTROPENIA [None]
  - WHITE BLOOD CELL COUNT DECREASED [None]
  - BRONCHOPNEUMONIA [None]
  - THROMBOCYTOPENIA [None]
  - BICYTOPENIA [None]
